FAERS Safety Report 8232449-3 (Version None)
Quarter: 2012Q1

REPORT INFORMATION
  Report Type: 
  Country: None (occurrence: None)
  Receive Date: 20120323
  Receipt Date: 20120322
  Transmission Date: 20120608
  Serious: No
  Sender: FDA-Public Use
  Company Number: US-BAYER-2012-028587

PATIENT
  Age: 66 Year
  Sex: Female
  Weight: 54.422 kg

DRUGS (8)
  1. LISINOPRIL [Concomitant]
     Dosage: 30 MG, UNK
     Route: 048
  2. PRILOSEC [Concomitant]
     Dosage: 20 MG, UNK
     Route: 048
  3. NEURONTIN [Concomitant]
     Dosage: 300 MG, UNK
     Route: 048
  4. ASPIRIN [Concomitant]
     Dosage: 81 MG, UNK
     Route: 048
  5. BETASERON [Suspect]
     Dosage: 0.25 MG, QOD
     Route: 058
  6. SYNTHROID [Concomitant]
     Dosage: 125 MCG, UNK
     Route: 048
  7. GLUCOSAMINE [Concomitant]
     Dosage: 167 MG, UNK
     Route: 048
  8. ALBUTEROL [Concomitant]
     Dosage: 90 MCG, UNK
     Route: 055

REACTIONS (1)
  - GASTROENTERITIS VIRAL [None]
